FAERS Safety Report 8447082-8 (Version None)
Quarter: 2012Q2

REPORT INFORMATION
  Report Type: 
  Country: None (occurrence: None)
  Receive Date: 20120619
  Receipt Date: 20120608
  Transmission Date: 20120825
  Serious: Yes (Other)
  Sender: FDA-Public Use
  Company Number: US-ASTRAZENECA-2012SE33064

PATIENT
  Age: 29 Year
  Sex: Male
  Weight: 122.5 kg

DRUGS (5)
  1. FLONASE [Concomitant]
     Indication: SINUSITIS
     Route: 045
  2. ANTIHISTAMINES [Concomitant]
  3. PREDNISONE [Concomitant]
  4. PROBIOTIC DIET WITH SUPPLEMENTS [Concomitant]
  5. PRILOSEC OTC [Suspect]
     Indication: GASTROOESOPHAGEAL REFLUX DISEASE
     Route: 048
     Dates: start: 20120508, end: 20120520

REACTIONS (11)
  - MUSCLE SPASMS [None]
  - ABDOMINAL DISTENSION [None]
  - TENDERNESS [None]
  - VOMITING [None]
  - DIARRHOEA [None]
  - DYSPNOEA [None]
  - NAUSEA [None]
  - DYSPEPSIA [None]
  - HEADACHE [None]
  - CONSTIPATION [None]
  - EXPIRED DRUG ADMINISTERED [None]
